FAERS Safety Report 7169504-5 (Version None)
Quarter: 2010Q4

REPORT INFORMATION
  Report Type: 
  Country: None (occurrence: None)
  Receive Date: 20101217
  Receipt Date: 20101206
  Transmission Date: 20110411
  Serious: Yes (Other)
  Sender: FDA-Public Use
  Company Number: US-PFIZER INC-2010165493

PATIENT
  Sex: Female
  Weight: 52.154 kg

DRUGS (1)
  1. EFFEXOR XR [Suspect]
     Indication: ANXIETY
     Dosage: 75 MG, 2X/DAY
     Route: 048
     Dates: start: 20100301, end: 20101101

REACTIONS (13)
  - ABDOMINAL PAIN UPPER [None]
  - AGITATION [None]
  - CONFUSIONAL STATE [None]
  - CRYING [None]
  - DIARRHOEA [None]
  - DISTURBANCE IN ATTENTION [None]
  - HEADACHE [None]
  - INSOMNIA [None]
  - MANIA [None]
  - NERVOUSNESS [None]
  - THINKING ABNORMAL [None]
  - VERTIGO [None]
  - WITHDRAWAL SYNDROME [None]
